FAERS Safety Report 9184630 (Version 3)
Quarter: 2013Q4

REPORT INFORMATION
  Report Type: Spontaneous
  Country: US (occurrence: US)
  Receive Date: 20130324
  Receipt Date: 20131021
  Transmission Date: 20140711
  Serious: Yes (Hospitalization)
  Sender: FDA-Public Use
  Company Number: US-TARO-2013P1003387

PATIENT
  Age: 59 Year
  Sex: Female
  Weight: 95.26 kg

DRUGS (7)
  1. SOLARAZE [Suspect]
     Indication: ACTINIC KERATOSIS
     Route: 061
     Dates: start: 20130109, end: 20130311
  2. SYNTHROID [Concomitant]
     Route: 048
     Dates: start: 1996
  3. HYZAAR 100/25MG [Concomitant]
     Route: 048
     Dates: start: 1996
  4. DEXILANT [Concomitant]
     Route: 048
     Dates: start: 2011
  5. NORVASC [Concomitant]
     Route: 048
     Dates: start: 201210
  6. POTASSIUM [Concomitant]
     Route: 048
     Dates: start: 201206
  7. TYLENOL [Concomitant]
     Route: 048
     Dates: start: 2000

REACTIONS (1)
  - Anxiety [Recovered/Resolved]
